FAERS Safety Report 14987325 (Version 1)
Quarter: 2018Q2

REPORT INFORMATION
  Report Type: Spontaneous
  Country: US (occurrence: US)
  Receive Date: 20180518
  Receipt Date: 20180518
  Transmission Date: 20180711
  Serious: No
  Sender: FDA-Public Use
  Company Number: None

PATIENT
  Age: 26 Year
  Sex: Female
  Weight: 78.75 kg

DRUGS (4)
  1. PARAGARD T 380A [Concomitant]
     Active Substance: COPPER
  2. MIRENA [Suspect]
     Active Substance: LEVONORGESTREL
     Indication: CONTRACEPTION
     Dosage: QUANTITY:1 INSERTION;?
     Route: 067
     Dates: start: 20170303, end: 20180418
  3. BIOTIN [Concomitant]
     Active Substance: BIOTIN
  4. DIFFERIN [Concomitant]
     Active Substance: ADAPALENE

REACTIONS (1)
  - Alopecia [None]

NARRATIVE: CASE EVENT DATE: 20170303
